FAERS Safety Report 9585917 (Version 1)
Quarter: 2013Q4

REPORT INFORMATION
  Report Type: Spontaneous
  Country: US (occurrence: None)
  Receive Date: 20131002
  Receipt Date: 20131002
  Transmission Date: 20140711
  Serious: Yes (Hospitalization)
  Sender: FDA-Public Use
  Company Number: None

PATIENT
  Age: 33 Year
  Sex: Male

DRUGS (4)
  1. TRAZODONE [Suspect]
     Indication: INSOMNIA
     Route: 048
     Dates: start: 20130203, end: 20130619
  2. PROPRANOLOL [Concomitant]
  3. HYDRALAZINE [Concomitant]
  4. LISINOPRIL [Concomitant]

REACTIONS (1)
  - Priapism [None]
